FAERS Safety Report 6513070-1 (Version None)
Quarter: 2009Q4

REPORT INFORMATION
  Report Type: 
  Country: None (occurrence: None)
  Receive Date: 20091222
  Receipt Date: 20091222
  Transmission Date: 20100525
  Serious: Yes (Other)
  Sender: FDA-Public Use
  Company Number: None

PATIENT
  Age: 35 Year
  Sex: Female
  Weight: 69.8539 kg

DRUGS (1)
  1. PROAIR HFA [Suspect]
     Dosage: 2 INHAL;ATIONS UP TO 4X'S A DAY INHAL
     Route: 055

REACTIONS (6)
  - DRUG INEFFECTIVE [None]
  - INSOMNIA [None]
  - MOUTH ULCERATION [None]
  - PRODUCT FORMULATION ISSUE [None]
  - PRODUCT QUALITY ISSUE [None]
  - TREMOR [None]
